FAERS Safety Report 5858857-3 (Version None)
Quarter: 2008Q3

REPORT INFORMATION
  Report Type: 
  Country: None (occurrence: None)
  Receive Date: 20080825
  Receipt Date: 20080815
  Transmission Date: 20090109
  Serious: Yes (Death)
  Sender: FDA-Public Use
  Company Number: 2008AL009129

PATIENT
  Age: 76 Year
  Sex: Male
  Weight: 63.5036 kg

DRUGS (1)
  1. DIGOXIN [Suspect]
     Indication: CARDIAC DISORDER
     Dosage: 0.125MG-00.25MG, PO
     Route: 048

REACTIONS (4)
  - DYSURIA [None]
  - HEART RATE INCREASED [None]
  - RENAL FAILURE [None]
  - VOMITING [None]
